FAERS Safety Report 5126920-0 (Version None)
Quarter: 2006Q4

REPORT INFORMATION
  Report Type: 
  Country: None (occurrence: None)
  Receive Date: 20061010
  Receipt Date: 20060925
  Transmission Date: 20070319
  Serious: Yes (Other)
  Sender: FDA-Public Use
  Company Number: 2006119409

PATIENT

DRUGS (1)
  1. DEPO-MEDROL [Suspect]
     Dosage: (80 MG), INTRAVENOUS
     Route: 042
     Dates: start: 20060925

REACTIONS (1)
  - INCORRECT ROUTE OF DRUG ADMINISTRATION [None]
